FAERS Safety Report 5931751-5 (Version None)
Quarter: 2008Q4

REPORT INFORMATION
  Report Type: 
  Country: None (occurrence: None)
  Receive Date: 20081023
  Receipt Date: 20060529
  Transmission Date: 20090506
  Serious: Yes (Hospitalization, Other)
  Sender: FDA-Public Use
  Company Number: 2006AL002038

PATIENT
  Age: 72 Year
  Sex: Male

DRUGS (3)
  1. DICLOFENAC SODIUM DELAYED-RELEASE TABLETS, 50 MG (PREPAC) (DICLOFENAC [Suspect]
     Indication: GOUT
     Dosage: 50 MG;TID;PO
     Route: 048
     Dates: start: 20051125, end: 20051214
  2. RAMIPRIL [Concomitant]
  3. ATENOLOL [Concomitant]

REACTIONS (1)
  - THROMBOCYTOPENIA [None]
